FAERS Safety Report 16561987 (Version 1)
Quarter: 2019Q3

REPORT INFORMATION
  Report Type: Spontaneous
  Country: US (occurrence: US)
  Receive Date: 20190711
  Receipt Date: 20190711
  Transmission Date: 20191004
  Serious: No
  Sender: FDA-Public Use
  Company Number: US-AMAG PHARMACEUTICALS, INC.-AMAG201902303

PATIENT
  Sex: Female

DRUGS (3)
  1. NESTABS 1 [Concomitant]
     Indication: VITAMIN SUPPLEMENTATION
  2. MAKENA [Suspect]
     Active Substance: HYDROXYPROGESTERONE CAPROATE
     Indication: PREMATURE DELIVERY
     Dosage: 275 MG/1.1 ML
     Route: 058
     Dates: start: 20181226
  3. VIRTGARD [Concomitant]
     Indication: VITAMIN SUPPLEMENTATION

REACTIONS (2)
  - Product administered at inappropriate site [Unknown]
  - Injection site pain [Unknown]
